FAERS Safety Report 15019040 (Version 1)
Quarter: 2018Q2

REPORT INFORMATION
  Report Type: Spontaneous
  Country: US (occurrence: US)
  Receive Date: 20180616
  Receipt Date: 20180616
  Transmission Date: 20180711
  Serious: No
  Sender: FDA-Public Use
  Company Number: US-009507513-1805USA014390

PATIENT
  Sex: Female
  Weight: 67.12 kg

DRUGS (2)
  1. EPIPEN [Concomitant]
     Active Substance: EPINEPHRINE
  2. NUVARING [Suspect]
     Active Substance: ETHINYL ESTRADIOL\ETONOGESTREL
     Indication: CONTRACEPTION
     Dosage: 1 RING, UNK
     Route: 067

REACTIONS (2)
  - Weight increased [Not Recovered/Not Resolved]
  - Swelling [Not Recovered/Not Resolved]
